FAERS Safety Report 24682653 (Version 1)
Quarter: 2024Q4

REPORT INFORMATION
  Report Type: Spontaneous
  Country: BR (occurrence: BR)
  Receive Date: 20241130
  Receipt Date: 20241130
  Transmission Date: 20250115
  Serious: Yes (Other)
  Sender: ALEXION PHARMACEUTICALS
  Company Number: BR-ASTRAZENECA-202410GLO022120BR

PATIENT
  Age: 58 Year

DRUGS (4)
  1. FULVESTRANT [Suspect]
     Active Substance: FULVESTRANT
     Indication: Breast cancer
  2. FULVESTRANT [Suspect]
     Active Substance: FULVESTRANT
  3. FULVESTRANT [Suspect]
     Active Substance: FULVESTRANT
  4. FULVESTRANT [Suspect]
     Active Substance: FULVESTRANT

REACTIONS (4)
  - Otitis media chronic [Unknown]
  - Malignant neoplasm progression [Unknown]
  - Metastasis [Unknown]
  - Metastases to central nervous system [Unknown]
